FAERS Safety Report 8439382 (Version 2)
Quarter: 2013Q2

REPORT INFORMATION
  Report Type: Spontaneous
  Country: US (occurrence: None)
  Receive Date: 20120104
  Receipt Date: 20120508
  Transmission Date: 20140414
  Serious: Yes (Other)
  Sender: FDA-Public Use
  Company Number: 2011HGS-002838

PATIENT
  Age: 46 Year
  Sex: Female
  Weight: 72.58 kg

DRUGS (16)
  1. BENLYSTA [Suspect]
     Indication: SYSTEMIC LUPUS ERYTHEMATOSUS
     Dosage: 1 IN 28 D, INTRAVENOUS DRIP
     Route: 041
     Dates: start: 20110610
  2. PLAQUENIL (HYDROXYCHLOROQUINE SULFATE) / ORAL / TABLET, FILM COATED / 200 MILLIGRAM(S) [Concomitant]
  3. IMURAN [Concomitant]
  4. ZYRTEC [Concomitant]
  5. HYDROXYZINE [Concomitant]
  6. ELMIRON (PENTOSAN POLYSULFATE SODIUM) [Concomitant]
  7. ZANAFLEX (TIZANIDINE HYDROCHLORIDE) [Concomitant]
  8. LASIX (FUROSEMIDE, FUROSEMIDE SODIUM) [Concomitant]
  9. PHENTERMINE [Concomitant]
  10. TRAMADOL HYDROCHLORIDE [Concomitant]
  11. VITAMIN D (ERGOCALCIFEROL) [Concomitant]
  12. VALTREX (VALACICLOVIR HYDROCHLORIDE) [Concomitant]
  13. BABY ASPIRIN (ACETYLSALICYLIC ACID) [Concomitant]
  14. VITAMIN C (ASCORBIC ACID) [Concomitant]
  15. UPA (DOPAMINE HYDROCHLORIDE) [Concomitant]
  16. MACROBID (NITROFURANTOIN) [Concomitant]

REACTIONS (11)
  - SYSTEMIC LUPUS ERYTHEMATOSUS [None]
  - FALL [None]
  - OEDEMA PERIPHERAL [None]
  - BUTTERFLY RASH [None]
  - AMENORRHOEA [None]
  - RASH VESICULAR [None]
  - PRURITUS [None]
  - DIARRHOEA [None]
  - Urinary tract infection [None]
  - Condition aggravated [None]
  - Local swelling [None]
